FAERS Safety Report 9896415 (Version 1)
Quarter: 2014Q1

REPORT INFORMATION
  Report Type: Spontaneous
  Country: US (occurrence: US)
  Receive Date: 20140213
  Receipt Date: 20140213
  Transmission Date: 20141002
  Serious: Yes (Other)
  Sender: FDA-Public Use
  Company Number: US-BRISTOL-MYERS SQUIBB COMPANY-19848241

PATIENT
  Age: 67 Year
  Sex: Male

DRUGS (11)
  1. ABATACEPT SUBQ INJECTION 125MG/ML [Suspect]
     Indication: RHEUMATOID ARTHRITIS
     Route: 058
     Dates: start: 201311
  2. VICODIN [Concomitant]
  3. ZOFRAN [Concomitant]
  4. POTASSIUM [Concomitant]
  5. LASIX [Concomitant]
  6. ATENOLOL [Concomitant]
  7. AMIODARONE [Concomitant]
  8. CLONIDINE [Concomitant]
  9. DOXAZOSIN [Concomitant]
  10. VITAMIN D [Concomitant]
  11. VITAMIN C [Concomitant]

REACTIONS (1)
  - Lung neoplasm malignant [Unknown]
